FAERS Safety Report 20574882 (Version 1)
Quarter: 2022Q1

REPORT INFORMATION
  Report Type: Spontaneous
  Country: CN (occurrence: CN)
  Receive Date: 20220310
  Receipt Date: 20220310
  Transmission Date: 20220424
  Serious: Yes (Other)
  Sender: FDA-Public Use
  Company Number: CN-ABBVIE-22K-035-4307256-00

PATIENT
  Age: 3 Year
  Sex: Male

DRUGS (2)
  1. VALPROATE SODIUM [Suspect]
     Active Substance: VALPROATE SODIUM
     Indication: Epilepsy
     Route: 048
     Dates: start: 201909, end: 2019
  2. VALPROATE SODIUM [Suspect]
     Active Substance: VALPROATE SODIUM
     Route: 048
     Dates: start: 20191209

REACTIONS (2)
  - Epilepsy [Recovered/Resolved]
  - Sluggishness [Not Recovered/Not Resolved]

NARRATIVE: CASE EVENT DATE: 20190901
